FAERS Safety Report 20583483 (Version 7)
Quarter: 2022Q2

REPORT INFORMATION
  Report Type: Report from Study
  Country: CA (occurrence: CA)
  Receive Date: 20220311
  Receipt Date: 20220620
  Transmission Date: 20220720
  Serious: Yes (Hospitalization, Other)
  Sender: FDA-Public Use
  Company Number: CA-GILEAD-2022-0568789

PATIENT
  Age: 61 Year
  Sex: Female

DRUGS (9)
  1. SACITUZUMAB GOVITECAN [Suspect]
     Active Substance: SACITUZUMAB GOVITECAN
     Indication: Triple negative breast cancer
     Dosage: 1200 MG
     Route: 042
     Dates: start: 20220128, end: 20220128
  2. SACITUZUMAB GOVITECAN [Suspect]
     Active Substance: SACITUZUMAB GOVITECAN
     Dosage: UNK, CYCLE 2 DAY 1
     Route: 042
     Dates: start: 20220218
  3. FILGRASTIM [Concomitant]
     Active Substance: FILGRASTIM
     Dosage: UNK
     Dates: start: 20220218
  4. EPREX [Concomitant]
     Active Substance: ERYTHROPOIETIN
     Dosage: UNK
     Dates: start: 20220218
  5. LOSEC [Concomitant]
     Active Substance: OMEPRAZOLE
  6. DEXAMETHASONE [Concomitant]
     Active Substance: DEXAMETHASONE
     Dosage: (PRE-MEDICATION PRIOR TO TRODELVY)
     Route: 042
  7. BENADRYL ALLERGY [Concomitant]
     Active Substance: DIPHENHYDRAMINE HYDROCHLORIDE
     Dosage: (PRE-MEDICATION PRIOR TO TRODELVY)
     Route: 042
  8. DECADRON (DEXAMETHASONE SODIUM PHOSPHATE) [Concomitant]
     Active Substance: DEXAMETHASONE SODIUM PHOSPHATE
     Dosage: UNK
  9. BENADRYL [Concomitant]
     Active Substance: DIPHENHYDRAMINE HYDROCHLORIDE
     Dosage: UNK

REACTIONS (31)
  - Anaemia [Recovered/Resolved]
  - Metastases to liver [Not Recovered/Not Resolved]
  - Red blood cell abnormality [Unknown]
  - Somnolence [Unknown]
  - Oropharyngeal pain [Unknown]
  - Malaise [Recovering/Resolving]
  - Lethargy [Unknown]
  - Pyrexia [Unknown]
  - Dyspnoea [Unknown]
  - Neutropenia [Unknown]
  - Diarrhoea [Not Recovered/Not Resolved]
  - Laboratory test abnormal [Not Recovered/Not Resolved]
  - Weight fluctuation [Not Recovered/Not Resolved]
  - Speech disorder [Unknown]
  - Chills [Recovered/Resolved]
  - Decreased appetite [Not Recovered/Not Resolved]
  - Headache [Recovered/Resolved]
  - Rhinorrhoea [Not Recovered/Not Resolved]
  - Constipation [Not Recovered/Not Resolved]
  - Nausea [Unknown]
  - Abdominal pain [Unknown]
  - Abdominal pain upper [Unknown]
  - Gastrooesophageal reflux disease [Not Recovered/Not Resolved]
  - Malaise [Unknown]
  - Aphonia [Unknown]
  - Oesophageal disorder [Unknown]
  - Pain [Unknown]
  - Burning sensation [Unknown]
  - Eating disorder [Unknown]
  - Cough [Unknown]
  - Intentional dose omission [Not Recovered/Not Resolved]

NARRATIVE: CASE EVENT DATE: 20220101
